FAERS Safety Report 7571098-7 (Version None)
Quarter: 2011Q2

REPORT INFORMATION
  Report Type: 
  Country: None (occurrence: None)
  Receive Date: 20110624
  Receipt Date: 20110621
  Transmission Date: 20111010
  Serious: Yes (Hospitalization, Other)
  Sender: FDA-Public Use
  Company Number: IT-PFIZER INC-2011138288

PATIENT
  Age: 87 Year
  Sex: Male

DRUGS (7)
  1. FELODIPINE [Concomitant]
  2. RAMIPRIL [Concomitant]
  3. ATORVASTATIN CALCIUM [Suspect]
     Indication: MYOCARDIAL ISCHAEMIA
     Dosage: 20 MG, DAILY
     Route: 048
     Dates: start: 20100101
  4. LASIX [Suspect]
     Indication: MYOCARDIAL ISCHAEMIA
     Dosage: 25 MG, DAILY
     Route: 048
  5. TICLID [Suspect]
     Indication: MYOCARDIAL ISCHAEMIA
     Dosage: 250 MG, DAILY
     Route: 048
  6. NITRODERM [Concomitant]
  7. BISOPROLOL FUMARATE [Concomitant]

REACTIONS (1)
  - DERMATITIS EXFOLIATIVE [None]
